FAERS Safety Report 18118098 (Version 1)
Quarter: 2020Q3

REPORT INFORMATION
  Report Type: Spontaneous
  Country: US (occurrence: US)
  Receive Date: 20200806
  Receipt Date: 20200806
  Transmission Date: 20201103
  Serious: No
  Sender: FDA-Public Use
  Company Number: US-AMGEN-USASP2020124911

PATIENT
  Age: 51 Year
  Sex: Male

DRUGS (6)
  1. LASIX [Concomitant]
     Active Substance: FUROSEMIDE
     Dosage: UNK
  2. LIPITOR [Concomitant]
     Active Substance: ATORVASTATIN CALCIUM
     Dosage: UNK
  3. OTEZLA [Suspect]
     Active Substance: APREMILAST
     Indication: PSORIASIS
     Dosage: 30 MILLIGRAM, BID
     Route: 048
     Dates: end: 202007
  4. NEPAFENAC [Concomitant]
     Active Substance: NEPAFENAC
     Dosage: UNK
  5. ASPIRIN [ACETYLSALICYLIC ACID] [Concomitant]
     Active Substance: ASPIRIN
     Dosage: UNK
  6. COREG [Concomitant]
     Active Substance: CARVEDILOL
     Dosage: UNK

REACTIONS (1)
  - Depressed mood [Recovering/Resolving]

NARRATIVE: CASE EVENT DATE: 2020
